FAERS Safety Report 6993287-2 (Version None)
Quarter: 2010Q3

REPORT INFORMATION
  Report Type: 
  Country: None (occurrence: None)
  Receive Date: 20100917
  Receipt Date: 20100622
  Transmission Date: 20110219
  Serious: No
  Sender: FDA-Public Use
  Company Number: US-ASTRAZENECA-2010SE29209

PATIENT
  Age: 16 Year
  Sex: Male

DRUGS (3)
  1. SEROQUEL XR [Suspect]
     Indication: SLEEP DISORDER
     Route: 048
     Dates: start: 20100401
  2. SEROQUEL XR [Suspect]
     Indication: PERSONALITY CHANGE
     Route: 048
     Dates: start: 20100401
  3. FOCALIN [Concomitant]

REACTIONS (1)
  - DRUG SCREEN POSITIVE [None]
